FAERS Safety Report 9126982 (Version 1)
Quarter: 2013Q1

REPORT INFORMATION
  Report Type: Spontaneous
  Country: VE (occurrence: VE)
  Receive Date: 20130228
  Receipt Date: 20130228
  Transmission Date: 20140127
  Serious: Yes (Other)
  Sender: FDA-Public Use
  Company Number: PHHY2013VE018201

PATIENT
  Age: 58 Year
  Sex: Male

DRUGS (2)
  1. SANDOSTATIN LAR [Suspect]
     Indication: ACROMEGALY
     Dosage: 20 MG, MONTHLY
     Route: 030
     Dates: start: 2003, end: 2011
  2. SANDOSTATIN LAR [Suspect]
     Dosage: 30 MG, MONTHLY
     Route: 030
     Dates: start: 2011

REACTIONS (3)
  - Gallbladder polyp [Unknown]
  - Large intestine polyp [Not Recovered/Not Resolved]
  - Gastritis [Unknown]
